FAERS Safety Report 12725198 (Version 3)
Quarter: 2016Q3

REPORT INFORMATION
  Report Type: Spontaneous
  Country: US (occurrence: US)
  Receive Date: 20160908
  Receipt Date: 20160926
  Transmission Date: 20161109
  Serious: Yes (Other)
  Sender: FDA-Public Use
  Company Number: US-PFIZER INC-2016417090

PATIENT
  Age: 79 Year
  Sex: Female
  Weight: 52.16 kg

DRUGS (4)
  1. XARELTO [Concomitant]
     Active Substance: RIVAROXABAN
     Indication: THROMBOSIS
     Dosage: 20 MG, 1X/DAY
     Route: 048
  2. COMBIGAN [Concomitant]
     Active Substance: BRIMONIDINE TARTRATE\TIMOLOL MALEATE
     Indication: OCULAR DISCOMFORT
     Dosage: 5 ML, 2X/DAY, IN THE RIGHT EYE
  3. XELJANZ XR [Suspect]
     Active Substance: TOFACITINIB CITRATE
     Indication: RHEUMATOID ARTHRITIS
     Dosage: 11 MG, 1X/DAY
     Route: 048
     Dates: start: 20160802, end: 20160914
  4. LEVOTHYROXINE. [Concomitant]
     Active Substance: LEVOTHYROXINE
     Indication: HYPOTHYROIDISM
     Dosage: 88 UG, 1X/DAY, IN MORNING
     Route: 048

REACTIONS (5)
  - Atrial fibrillation [Recovered/Resolved]
  - Asthenia [Not Recovered/Not Resolved]
  - Hypokinesia [Unknown]
  - Dyspnoea [Recovering/Resolving]
  - Feeling abnormal [Recovering/Resolving]

NARRATIVE: CASE EVENT DATE: 201608
